FAERS Safety Report 4541628-8 (Version None)
Quarter: 2004Q4

REPORT INFORMATION
  Report Type: 
  Country: None (occurrence: None)
  Receive Date: 20041227
  Receipt Date: 20041215
  Transmission Date: 20050328
  Serious: Yes (Other)
  Sender: FDA-Public Use
  Company Number: 2004217372BR

PATIENT
  Age: 21 Year
  Sex: Female

DRUGS (3)
  1. MEDROXYPROGESTERONE ACETATE [Suspect]
     Indication: CONTRACEPTION
     Dosage: SEE IMAGE
     Route: 030
     Dates: start: 20040120, end: 20040120
  2. MEDROXYPROGESTERONE ACETATE [Suspect]
     Indication: CONTRACEPTION
     Dosage: SEE IMAGE
     Route: 030
     Dates: start: 20040401, end: 20040401
  3. MEDROXYPROGESTERONE ACETATE [Suspect]
     Indication: CONTRACEPTION
     Dosage: SEE IMAGE
     Route: 030
     Dates: start: 20041125, end: 20041125

REACTIONS (5)
  - ABORTION SPONTANEOUS [None]
  - ANTEPARTUM HAEMORRHAGE [None]
  - DRUG EXPOSURE DURING PREGNANCY [None]
  - PREGNANCY WITH INJECTABLE CONTRACEPTIVE [None]
  - TREATMENT NONCOMPLIANCE [None]
